FAERS Safety Report 24990333 (Version 1)
Quarter: 2025Q1

REPORT INFORMATION
  Report Type: Spontaneous
  Country: US (occurrence: US)
  Receive Date: 20250220
  Receipt Date: 20250220
  Transmission Date: 20250409
  Serious: No
  Sender: DAIICHI
  Company Number: US-DSJP-DS-2025-126037-US

PATIENT
  Sex: Female

DRUGS (3)
  1. ENHERTU [Suspect]
     Active Substance: FAM-TRASTUZUMAB DERUXTECAN-NXKI
     Indication: Breast cancer metastatic
     Route: 065
  2. ENHERTU [Suspect]
     Active Substance: FAM-TRASTUZUMAB DERUXTECAN-NXKI
     Route: 065
  3. OLANZAPINE [Concomitant]
     Active Substance: OLANZAPINE
     Indication: Product used for unknown indication

REACTIONS (4)
  - Pain in extremity [Unknown]
  - Pain in extremity [Unknown]
  - Abdominal pain [Unknown]
  - Nausea [Unknown]
